FAERS Safety Report 18328555 (Version 1)
Quarter: 2020Q3

REPORT INFORMATION
  Report Type: Spontaneous
  Country: US (occurrence: US)
  Receive Date: 20200929
  Receipt Date: 20200929
  Transmission Date: 20201103
  Serious: Yes (Death)
  Sender: FDA-Public Use
  Company Number: None

PATIENT
  Age: 66 Year
  Sex: Male
  Weight: 80 kg

DRUGS (22)
  1. AZITHROMYCIN 500 MG IV ONCE DAILY [Concomitant]
     Dates: start: 20200829, end: 20200831
  2. DEXAMETHASONE 6 MG IV ONCE DAILY [Concomitant]
     Dates: start: 20200829, end: 20200913
  3. ENOXAPARIN 80 MG SQ Q12HR [Concomitant]
     Dates: start: 20200902, end: 20200918
  4. MICAFUNGIN 100 MG IV ONCE DAILY [Concomitant]
     Dates: start: 20200917, end: 20200921
  5. INSULIN GLARGINE/LISPRO [Concomitant]
     Dates: start: 20200905, end: 20200917
  6. VANCOMYCIN PER PROTOCOL [Concomitant]
     Dates: start: 20200903, end: 20200904
  7. CHOLECALCIFEROL 2,000 UNITS PO ONCE DAILY [Concomitant]
     Dates: start: 20200915, end: 20200921
  8. PIP/TAZO 3.375 GM IV Q8HR [Concomitant]
     Dates: start: 20200916, end: 20200917
  9. MEROPENEM RENALLY DOSED [Concomitant]
     Dates: start: 20200917, end: 20200921
  10. REMDESIVIR. [Suspect]
     Active Substance: REMDESIVIR
     Indication: COVID-19 PNEUMONIA
     Route: 042
     Dates: start: 20200901, end: 20200905
  11. ASCORBIC ACID 1000 MG PO BID [Concomitant]
     Dates: start: 20200915, end: 20200922
  12. AZITHROMYCIN 500 MG IV/PO ONCE DAILY [Concomitant]
     Dates: start: 20200917, end: 20200921
  13. CEFTRIAXONE 1 GM IV ONCE DAILY [Concomitant]
     Dates: start: 20200829, end: 20200831
  14. ZINC SULFATE 220 MG PO ONCE BID [Concomitant]
     Dates: start: 20200901, end: 20200905
  15. ENOXAPARIN 30 MG SQ Q12HR [Concomitant]
     Dates: start: 20200829, end: 20200901
  16. ASCORBIC ACID 1000 MG PO BID [Concomitant]
     Dates: start: 20200901, end: 20200905
  17. CEFTRIAXONE 2 GM IV ONCE DAILY [Concomitant]
     Dates: start: 20200901, end: 20200905
  18. CONVALESCENT PLASMA [Concomitant]
     Active Substance: HUMAN PLASMA
     Dates: start: 20200902, end: 20200902
  19. COLCHICINE 0.6 MG PO BID [Concomitant]
     Dates: start: 20200916, end: 20200920
  20. FAMOTIDINE 20 MG PO Q12HR [Concomitant]
     Dates: start: 20200830, end: 20200917
  21. PANTOPRAZOLE/OMEPRAZOLE PO [Concomitant]
     Dates: start: 20200917, end: 20200922
  22. CEFTAROLINE 600 MG IV Q12HRS [Concomitant]
     Dates: start: 20200905, end: 20200914

REACTIONS (38)
  - Red blood cell count decreased [None]
  - Blood bilirubin increased [None]
  - Neutrophil count increased [None]
  - Pupil fixed [None]
  - Cardiac disorder [None]
  - Hypochromasia [None]
  - Macrocytosis [None]
  - Blood magnesium increased [None]
  - Mean cell volume decreased [None]
  - Carbon dioxide decreased [None]
  - Alanine aminotransferase increased [None]
  - Lymphocyte count decreased [None]
  - Monocyte count decreased [None]
  - Acute kidney injury [None]
  - Hyponatraemia [None]
  - Respiratory failure [None]
  - Haemodialysis [None]
  - Blood glucose decreased [None]
  - Blood urea increased [None]
  - Glomerular filtration rate [None]
  - Aspartate aminotransferase increased [None]
  - Metabolic acidosis [None]
  - Hypokalaemia [None]
  - Haemoglobin decreased [None]
  - Haematocrit decreased [None]
  - Blood calcium decreased [None]
  - Cardiac arrest [None]
  - Bradycardia [None]
  - Platelet count decreased [None]
  - Mean platelet volume decreased [None]
  - Unresponsive to stimuli [None]
  - Hypotension [None]
  - Dialysis [None]
  - Blood sodium increased [None]
  - Blood creatinine increased [None]
  - Band neutrophil count increased [None]
  - Metamyelocyte count increased [None]
  - Neutrophil toxic granulation present [None]

NARRATIVE: CASE EVENT DATE: 20200922
